FAERS Safety Report 15568048 (Version 3)
Quarter: 2019Q1

REPORT INFORMATION
  Report Type: Spontaneous
  Country: US (occurrence: US)
  Receive Date: 20181030
  Receipt Date: 20190102
  Transmission Date: 20190417
  Serious: Yes (Life-Threatening, Hospitalization, Other)
  Sender: FDA-Public Use
  Company Number: US-ALLERGAN-1850849US

PATIENT
  Age: 6 Decade
  Sex: Male

DRUGS (1)
  1. HYDROCHLOROTHIAZIDE UNK [Suspect]
     Active Substance: HYDROCHLOROTHIAZIDE
     Indication: HYPERTENSION
     Dosage: UNK
     Route: 065

REACTIONS (9)
  - Hypotension [Unknown]
  - Pulmonary oedema [Recovered/Resolved]
  - Respiratory distress [Unknown]
  - Hypoxia [Unknown]
  - Cardiac arrest [Recovered/Resolved]
  - Metabolic acidosis [Unknown]
  - Pulmonary oedema [Unknown]
  - Acute respiratory distress syndrome [Recovered/Resolved]
  - Pneumonia pneumococcal [Recovered/Resolved]
